FAERS Safety Report 6542144-4 (Version None)
Quarter: 2010Q1

REPORT INFORMATION
  Report Type: 
  Country: None (occurrence: None)
  Receive Date: 20100119
  Receipt Date: 20100111
  Transmission Date: 20100710
  Serious: Yes (Other)
  Sender: FDA-Public Use
  Company Number: US-JNJFOC-20100104920

PATIENT
  Sex: Female

DRUGS (1)
  1. TOPAMAX [Suspect]
     Indication: HEADACHE
     Dosage: 50 MG IN MORNING AND 75 MG IN EVENING
     Route: 048

REACTIONS (4)
  - COAGULOPATHY [None]
  - FATIGUE [None]
  - HEADACHE [None]
  - NAUSEA [None]
